FAERS Safety Report 5405189-3 (Version None)
Quarter: 2007Q3

REPORT INFORMATION
  Report Type: 
  Country: None (occurrence: None)
  Receive Date: 20070803
  Receipt Date: 20070726
  Transmission Date: 20080115
  Serious: Yes (Hospitalization)
  Sender: FDA-Public Use
  Company Number: US-ELI_LILLY_AND_COMPANY-US200707006386

PATIENT
  Age: 67 Year
  Sex: Female

DRUGS (2)
  1. HUMULIN N [Suspect]
     Indication: DIABETES MELLITUS
     Dosage: UNK, EACH EVENING
     Dates: start: 19920101
  2. HUMALOG [Suspect]
     Indication: DIABETES MELLITUS
     Dosage: UNK, OTHER
     Dates: start: 19920101

REACTIONS (3)
  - BLOOD GLUCOSE INCREASED [None]
  - FALL [None]
  - PELVIC FRACTURE [None]
